FAERS Safety Report 21314678 (Version 1)
Quarter: 2022Q3

REPORT INFORMATION
  Report Type: Spontaneous
  Country: US (occurrence: None)
  Receive Date: 20220909
  Receipt Date: 20220909
  Transmission Date: 20221026
  Serious: No
  Sender: FDA-Public Use
  Company Number: US-ARIS GLOBAL-202110-1903

PATIENT
  Sex: Female

DRUGS (13)
  1. OXERVATE [Suspect]
     Active Substance: CENEGERMIN-BKBJ
     Indication: Keratitis
     Route: 047
     Dates: start: 20210826
  2. OXERVATE [Suspect]
     Active Substance: CENEGERMIN-BKBJ
     Indication: Ophthalmic herpes zoster
  3. OXERVATE [Suspect]
     Active Substance: CENEGERMIN-BKBJ
     Indication: Corneal disorder
  4. METHYLPREDNISOLONE [Concomitant]
     Active Substance: METHYLPREDNISOLONE
     Dosage: TABLET DOUBLE STRENGTH
  5. NAPROXEN [Concomitant]
     Active Substance: NAPROXEN
  6. PREDNISONE [Concomitant]
     Active Substance: PREDNISONE
  7. LEVOTHYROXINE [Concomitant]
     Active Substance: LEVOTHYROXINE
  8. COMBIGAN [Concomitant]
     Active Substance: BRIMONIDINE TARTRATE\TIMOLOL MALEATE
     Dosage: 0.2%-0.5%
  9. TOBRADEX [Concomitant]
     Active Substance: DEXAMETHASONE\TOBRAMYCIN
     Dosage: 0.3 %-0.1% DROPS SUSPENSION
  10. ZIRGAN [Concomitant]
     Active Substance: GANCICLOVIR
  11. CALCIUM/VITAMINE D3 [Concomitant]
     Dosage: 600MG/12.5MG EXTENDED RELEASE TABLET
  12. VITAMIN D3 [Concomitant]
     Active Substance: CHOLECALCIFEROL
  13. VALSARTAN [Concomitant]
     Active Substance: VALSARTAN

REACTIONS (1)
  - Eye pain [Unknown]
